FAERS Safety Report 6262833-9 (Version None)
Quarter: 2009Q3

REPORT INFORMATION
  Report Type: 
  Country: None (occurrence: None)
  Receive Date: 20090708
  Receipt Date: 20090625
  Transmission Date: 20100115
  Serious: Yes (Hospitalization)
  Sender: FDA-Public Use
  Company Number: APP200900345

PATIENT
  Age: 75 Year
  Sex: Male
  Weight: 155 kg

DRUGS (7)
  1. IRINOTECAN HYDROCHLORIDE [Suspect]
     Indication: COLON CANCER
     Dosage: 250 MG, 1 IN 14 D, INTRAVENOUS
     Route: 042
     Dates: start: 20090623, end: 20090623
  2. IRINOTECAN HYDROCHLORIDE [Suspect]
  3. IRINOTECAN HYDROCHLORIDE [Suspect]
  4. IRINOTECAN HYDROCHLORIDE [Suspect]
  5. AVASTIN (BEVACIZUMAB) (SIMVASTATIN) [Concomitant]
  6. FLUOROURACIL [Concomitant]
  7. LEUCOVORIN CALCIUM [Concomitant]

REACTIONS (3)
  - BLOOD PRESSURE SYSTOLIC INCREASED [None]
  - DRUG HYPERSENSITIVITY [None]
  - DYSARTHRIA [None]
